FAERS Safety Report 5457277-3 (Version None)
Quarter: 2007Q3

REPORT INFORMATION
  Report Type: 
  Country: None (occurrence: None)
  Receive Date: 20070918
  Receipt Date: 20070206
  Transmission Date: 20080115
  Serious: Yes (Hospitalization)
  Sender: FDA-Public Use
  Company Number: US-ASTRAZENECA-2007UW02506

PATIENT
  Age: 41 Year
  Sex: Male

DRUGS (8)
  1. SEROQUEL [Suspect]
     Indication: BIPOLAR DISORDER
     Dosage: 50  MG BID AND 300 MG HS
     Route: 048
  2. SURFAK [Concomitant]
  3. COGENTIN [Concomitant]
  4. OXCARBAZEPINE [Concomitant]
  5. RISPERDAL [Concomitant]
  6. ASPIRIN [Concomitant]
  7. ATIVAN [Concomitant]
  8. ABILIFY [Concomitant]

REACTIONS (2)
  - OVERDOSE [None]
  - SUICIDE ATTEMPT [None]
